FAERS Safety Report 7523702-7 (Version None)
Quarter: 2011Q2

REPORT INFORMATION
  Report Type: 
  Country: None (occurrence: None)
  Receive Date: 20110603
  Receipt Date: 20110525
  Transmission Date: 20111010
  Serious: Yes (Hospitalization)
  Sender: FDA-Public Use
  Company Number: US-ASTRAZENECA-2011SE32137

PATIENT
  Age: 73 Year
  Sex: Female

DRUGS (11)
  1. SIMVASTATIN [Concomitant]
     Route: 048
  2. SYMBICORT [Suspect]
     Indication: ASTHMA
     Dosage: 160/4.5 BID
     Route: 055
     Dates: start: 20100801
  3. TRIAMTERENE [Concomitant]
     Route: 048
  4. ALBUTEROL SULFATE AUTOHALER [Concomitant]
     Route: 055
  5. CALCIUM CARBONATE [Concomitant]
     Route: 048
  6. SINGULAIR [Concomitant]
     Route: 048
  7. SERTRALINE HYDROCHLORIDE [Concomitant]
     Route: 048
  8. LEVOTHYROXINE SODIUM [Concomitant]
     Route: 048
  9. FLUTICASONE PROPIONATE [Concomitant]
     Route: 045
  10. MUCINEX [Concomitant]
     Route: 048
  11. LORATADINE [Concomitant]
     Route: 048

REACTIONS (6)
  - COUGH [None]
  - KNEE ARTHROPLASTY [None]
  - ASTHENIA [None]
  - HYPERHIDROSIS [None]
  - DYSPNOEA [None]
  - DRUG INEFFECTIVE [None]
